FAERS Safety Report 5786530-9 (Version None)
Quarter: 2008Q2

REPORT INFORMATION
  Report Type: 
  Country: None (occurrence: None)
  Receive Date: 20080624
  Receipt Date: 20080213
  Transmission Date: 20081010
  Serious: No
  Sender: FDA-Public Use
  Company Number: US-BOEHRINGER INGELHEIM GMBH, GERMANY-2006-BP-04888BP

PATIENT
  Sex: Male

DRUGS (12)
  1. MIRAPEX [Suspect]
     Indication: PARKINSON'S DISEASE
     Route: 048
     Dates: start: 20011205, end: 20050527
  2. SINEMET CR [Concomitant]
     Indication: PARKINSON'S DISEASE
     Dates: start: 20010301
  3. AMANTADINE HCL [Concomitant]
     Indication: PARKINSON'S DISEASE
     Dates: start: 20021101
  4. STALEVO 100 [Concomitant]
     Indication: PARKINSON'S DISEASE
     Dates: start: 20040301, end: 20050501
  5. SPECTAZOLE [Concomitant]
  6. TYLENOL W/ CODEINE NO. 3 [Concomitant]
  7. NAPROSYN [Concomitant]
  8. LASIX [Concomitant]
  9. XENICAL [Concomitant]
  10. FLEXERIL [Concomitant]
  11. ULTRACET [Concomitant]
  12. SINEMET [Concomitant]
     Indication: PARKINSON'S DISEASE
     Route: 048

REACTIONS (5)
  - DEPRESSION [None]
  - HYPERPHAGIA [None]
  - OBSESSIVE-COMPULSIVE DISORDER [None]
  - PATHOLOGICAL GAMBLING [None]
  - SLEEP DISORDER [None]
